FAERS Safety Report 6685925-9 (Version None)
Quarter: 2010Q2

REPORT INFORMATION
  Report Type: 
  Country: None (occurrence: None)
  Receive Date: 20100419
  Receipt Date: 20100412
  Transmission Date: 20101027
  Serious: Yes (Life-Threatening, Hospitalization, Disabling, Other)
  Sender: FDA-Public Use
  Company Number: AU-WYE-G05940910

PATIENT
  Sex: Female

DRUGS (3)
  1. EFFEXOR XR [Suspect]
     Dosage: UNKNOWN
     Route: 048
  2. CALCIUM [Concomitant]
  3. LIPITOR [Suspect]
     Indication: TYPE IIA HYPERLIPIDAEMIA
     Dosage: UNKNOWN

REACTIONS (5)
  - ASTHENIA [None]
  - BEDRIDDEN [None]
  - H1N1 INFLUENZA [None]
  - HEPATIC FAILURE [None]
  - MALAISE [None]
